FAERS Safety Report 23649227 (Version 2)
Quarter: 2024Q1

REPORT INFORMATION
  Report Type: Report from Study
  Country: GB (occurrence: GB)
  Receive Date: 20240319
  Receipt Date: 20240326
  Transmission Date: 20240409
  Serious: Yes (Other)
  Sender: FDA-Public Use
  Company Number: GB-ABBVIE-5679567

PATIENT
  Age: 80 Year
  Sex: Male

DRUGS (2)
  1. CARBIDOPA\LEVODOPA [Suspect]
     Active Substance: CARBIDOPA\LEVODOPA
     Indication: Parkinson^s disease
     Dosage: MD: 5.9MLS, CR: 3.8MLS, ED: 1.0MLS
     Route: 050
  2. CARBIDOPA\LEVODOPA [Suspect]
     Active Substance: CARBIDOPA\LEVODOPA

REACTIONS (9)
  - Palliative care [Unknown]
  - Weight decreased [Unknown]
  - Device occlusion [Recovered/Resolved]
  - Device leakage [Unknown]
  - Aphasia [Unknown]
  - Incorrect route of product administration [Unknown]
  - Somnolence [Unknown]
  - Feeding disorder [Unknown]
  - Parkinson^s disease [Unknown]
